FAERS Safety Report 7760835-4 (Version None)
Quarter: 2011Q3

REPORT INFORMATION
  Report Type: 
  Country: None (occurrence: None)
  Receive Date: 20110919
  Receipt Date: 20110916
  Transmission Date: 20111222
  Serious: Yes (Other)
  Sender: FDA-Public Use
  Company Number: US-PFIZER INC-2011187555

PATIENT
  Sex: Female
  Weight: 67.574 kg

DRUGS (15)
  1. CHANTIX [Suspect]
     Indication: SMOKING CESSATION THERAPY
     Dosage: 0.5 MG, 1X/DAY
     Route: 048
  2. GABAPENTIN [Concomitant]
     Indication: FIBROMYALGIA
     Dosage: UNK
  3. CLONAZEPAM [Concomitant]
     Dosage: UNK
  4. LISINOPRIL [Concomitant]
     Dosage: UNK
  5. CARVEDILOL [Concomitant]
     Indication: CARDIAC DISORDER
     Dosage: UNK
  6. DEPAKOTE [Concomitant]
     Dosage: UNK
  7. CHANTIX [Suspect]
     Dosage: 0.25 MG, 1X/DAY
     Route: 048
     Dates: start: 20110829
  8. CHANTIX [Suspect]
     Dosage: UNK
     Route: 048
     Dates: start: 20110901
  9. FUROSEMIDE [Concomitant]
     Dosage: UNK
  10. FLECTOR [Concomitant]
     Indication: FIBROMYALGIA
     Dosage: UNK
  11. CHANTIX [Suspect]
     Dosage: 0.5 MG, 2X/DAY
     Route: 048
  12. HYDROCODONE [Concomitant]
     Indication: FIBROMYALGIA
     Dosage: UNK
  13. CHANTIX [Suspect]
     Dosage: UNK
     Route: 048
     Dates: start: 20110813, end: 20110801
  14. FLEXERIL [Concomitant]
     Dosage: UNK
  15. COUMADIN [Concomitant]
     Dosage: UNK, 1X/DAY

REACTIONS (2)
  - ROAD TRAFFIC ACCIDENT [None]
  - DISORIENTATION [None]
